FAERS Safety Report 16642551 (Version 1)
Quarter: 2019Q3

REPORT INFORMATION
  Report Type: Spontaneous
  Country: ES (occurrence: ES)
  Receive Date: 20190729
  Receipt Date: 20190729
  Transmission Date: 20191004
  Serious: Yes (Hospitalization, Other)
  Sender: FDA-Public Use
  Company Number: ES-JNJFOC-20190731290

PATIENT
  Age: 74 Year
  Sex: Male

DRUGS (2)
  1. SIMPONI [Suspect]
     Active Substance: GOLIMUMAB
     Indication: CROHN^S DISEASE
     Route: 058
  2. AZATHIOPRINE. [Concomitant]
     Active Substance: AZATHIOPRINE

REACTIONS (8)
  - Product use in unapproved indication [Unknown]
  - Subcutaneous emphysema [Recovered/Resolved]
  - Sepsis [Recovered/Resolved]
  - Intestinal dilatation [Recovered/Resolved]
  - Enterocutaneous fistula [Recovered/Resolved]
  - Overgrowth bacterial [Recovered/Resolved]
  - Ileal stenosis [Recovered/Resolved]
  - Off label use [Unknown]
